FAERS Safety Report 8237112-0 (Version None)
Quarter: 2012Q1

REPORT INFORMATION
  Report Type: 
  Country: None (occurrence: None)
  Receive Date: 20120327
  Receipt Date: 20120319
  Transmission Date: 20120608
  Serious: No
  Sender: FDA-Public Use
  Company Number: US-JNJFOC-20110401845

PATIENT
  Age: 47 Year
  Sex: Female

DRUGS (5)
  1. DURAGESIC-100 [Suspect]
     Indication: BACK PAIN
     Route: 062
  2. ROBAXIN [Concomitant]
     Indication: MUSCLE SPASMS
     Route: 065
     Dates: start: 20060101
  3. FENTANYL-100 [Suspect]
     Route: 062
  4. ULTRAM [Concomitant]
     Indication: PAIN
     Route: 065
     Dates: start: 20060101
  5. FENTANYL-100 [Suspect]
     Indication: BACK PAIN
     Route: 062

REACTIONS (5)
  - PRODUCT QUALITY ISSUE [None]
  - ERYTHEMA [None]
  - INCORRECT DRUG ADMINISTRATION DURATION [None]
  - RASH [None]
  - HYPERSENSITIVITY [None]
